FAERS Safety Report 8300763-9 (Version None)
Quarter: 2012Q2

REPORT INFORMATION
  Report Type: 
  Country: None (occurrence: None)
  Receive Date: 20120420
  Receipt Date: 20120417
  Transmission Date: 20120825
  Serious: Yes (Death, Hospitalization)
  Sender: FDA-Public Use
  Company Number: PHHY2012CA032683

PATIENT
  Sex: Female

DRUGS (1)
  1. EXJADE [Suspect]
     Indication: MYELODYSPLASTIC SYNDROME
     Route: 048
     Dates: end: 20111101

REACTIONS (4)
  - LUNG NEOPLASM MALIGNANT [None]
  - DEATH [None]
  - HEPATIC FUNCTION ABNORMAL [None]
  - ASTHENIA [None]
